FAERS Safety Report 6428331-4 (Version None)
Quarter: 2009Q4

REPORT INFORMATION
  Report Type: 
  Country: None (occurrence: None)
  Receive Date: 20091102
  Receipt Date: 20091019
  Transmission Date: 20100525
  Serious: Yes (Other)
  Sender: FDA-Public Use
  Company Number: GXKR2009FI11800

PATIENT
  Age: 73 Year
  Sex: Male

DRUGS (3)
  1. LIPCUT    (SIMVASTATIN) TABLET, 10MG [Suspect]
     Indication: CORONARY ARTERY DISEASE
     Dosage: 10 MG, ORAL
     Route: 048
     Dates: start: 20000101, end: 20090618
  2. SPESICOR (METOPROLOL TARTRATE) [Concomitant]
  3. PRIMASPAN (ACETYLSALICYLIC ACID) [Concomitant]

REACTIONS (4)
  - COUGH [None]
  - LUNG DISORDER [None]
  - PYREXIA [None]
  - WEIGHT DECREASED [None]
